FAERS Safety Report 10434872 (Version 1)
Quarter: 2014Q3

REPORT INFORMATION
  Report Type: Spontaneous
  Country: US (occurrence: None)
  Receive Date: 20140815
  Receipt Date: 20140815
  Transmission Date: 20150326
  Serious: No
  Sender: FDA-Public Use
  Company Number: 2014TUS003732

PATIENT
  Age: 43 Year
  Sex: Female

DRUGS (5)
  1. CLONIDINE (CLONIDINE) [Concomitant]
     Active Substance: CLONIDINE
  2. LAMICTAL [Concomitant]
     Active Substance: LAMOTRIGINE
  3. BRINTELLIX [Suspect]
     Active Substance: VORTIOXETINE HYDROBROMIDE
     Indication: MAJOR DEPRESSION
     Route: 048
     Dates: start: 20140504
  4. ARMOUR THYROID (THYROID) [Concomitant]
  5. SPIRONOLACTONE (SPIRONOLACTONE) [Concomitant]
     Active Substance: SPIRONOLACTONE

REACTIONS (6)
  - Visual acuity reduced [None]
  - Visual field defect [None]
  - Abdominal discomfort [None]
  - Nausea [None]
  - Vomiting [None]
  - Condition aggravated [None]
